FAERS Safety Report 6014425-4 (Version None)
Quarter: 2008Q4

REPORT INFORMATION
  Report Type: 
  Country: None (occurrence: None)
  Receive Date: 20081219
  Receipt Date: 20080630
  Transmission Date: 20090506
  Serious: No
  Sender: FDA-Public Use
  Company Number: A0732892A

PATIENT
  Age: 81 Year
  Sex: Male
  Weight: 90.9 kg

DRUGS (4)
  1. AVODART [Suspect]
     Indication: DRUG USE FOR UNKNOWN INDICATION
     Dosage: .5U UNKNOWN
     Route: 048
     Dates: start: 20080324, end: 20080401
  2. METOPROLOL TARTRATE [Concomitant]
     Dosage: 50U UNKNOWN
     Route: 048
  3. FLOMAX [Concomitant]
     Route: 048
  4. MULTI-VITAMIN [Concomitant]

REACTIONS (1)
  - JOINT SWELLING [None]
